FAERS Safety Report 16202149 (Version 1)
Quarter: 2019Q2

REPORT INFORMATION
  Report Type: Spontaneous
  Country: US (occurrence: US)
  Receive Date: 20190312
  Receipt Date: 20190312
  Transmission Date: 20190711
  Serious: No
  Sender: FDA-Public Use
  Company Number: None

PATIENT
  Age: 67 Year
  Sex: Female
  Weight: 58.97 kg

DRUGS (9)
  1. CIPRO [Suspect]
     Active Substance: CIPROFLOXACIN HYDROCHLORIDE
     Indication: CYSTITIS
     Route: 048
     Dates: start: 20180712, end: 20180717
  2. VITAMIN K [Concomitant]
     Active Substance: PHYTONADIONE
  3. JUICE PLUS [Concomitant]
     Active Substance: DIETARY SUPPLEMENT
  4. ASTAXANTHIN [Concomitant]
  5. OSTEO BI-FLEX [Concomitant]
     Active Substance: CHONDROITIN SULFATE A\GLUCOSAMINE
  6. WILD CAUGHT SALMON OIL [Concomitant]
  7. VITAMIN D NOS [Concomitant]
     Active Substance: VITAMIN D NOS
  8. CALCIUM [Concomitant]
     Active Substance: CALCIUM
  9. MAGNESIUM [Concomitant]
     Active Substance: MAGNESIUM

REACTIONS (9)
  - Gait disturbance [None]
  - Pain in extremity [None]
  - Pain [None]
  - Fall [None]
  - Skin discolouration [None]
  - Foot fracture [None]
  - Malaise [None]
  - Musculoskeletal stiffness [None]
  - Vulvovaginal mycotic infection [None]

NARRATIVE: CASE EVENT DATE: 20180712
